FAERS Safety Report 16091355 (Version 1)
Quarter: 2019Q1

REPORT INFORMATION
  Report Type: Spontaneous
  Country: GB (occurrence: GB)
  Receive Date: 20190319
  Receipt Date: 20190319
  Transmission Date: 20190418
  Serious: Yes (Other)
  Sender: FDA-Public Use
  Company Number: GB-MYLANLABS-2019M1024692

PATIENT
  Age: 10 Year
  Sex: Female

DRUGS (5)
  1. SERETIDE [Concomitant]
     Active Substance: FLUTICASONE PROPIONATE\SALMETEROL XINAFOATE
  2. FLUTICASONE. [Concomitant]
     Active Substance: FLUTICASONE
  3. SALBUTAMOL [Concomitant]
     Active Substance: ALBUTEROL
  4. MONTELUKAST [Suspect]
     Active Substance: MONTELUKAST SODIUM
     Indication: ASTHMA
     Dosage: UNK
     Route: 048
  5. CETIRIZINE [Concomitant]
     Active Substance: CETIRIZINE HYDROCHLORIDE

REACTIONS (3)
  - Emotional distress [Unknown]
  - Suicidal ideation [Recovered/Resolved]
  - Depressed mood [Unknown]
